FAERS Safety Report 5513537-9 (Version None)
Quarter: 2007Q4

REPORT INFORMATION
  Report Type: 
  Country: None (occurrence: None)
  Receive Date: 20071108
  Receipt Date: 20071029
  Transmission Date: 20080405
  Serious: Yes (Hospitalization, Disabling)
  Sender: FDA-Public Use
  Company Number: OSCN-NO-0604S-0094

PATIENT
  Age: 55 Year
  Sex: Female

DRUGS (1)
  1. OMNISCAN [Suspect]
     Indication: DRUG USE FOR UNKNOWN INDICATION
     Dosage: 500 ML, SINGLE DOSE, I.V.
     Route: 042
     Dates: start: 20040629, end: 20040629

REACTIONS (3)
  - ABDOMINAL PAIN [None]
  - NEPHROGENIC SYSTEMIC FIBROSIS [None]
  - PIGMENTATION DISORDER [None]
